FAERS Safety Report 7217039-3 (Version None)
Quarter: 2011Q1

REPORT INFORMATION
  Report Type: 
  Country: None (occurrence: None)
  Receive Date: 20110110
  Receipt Date: 20101214
  Transmission Date: 20110831
  Serious: No
  Sender: FDA-Public Use
  Company Number: US-B.I. PHARMACEUTICALS,INC./RIDGEFIELD-2010-BP-14440BP

PATIENT
  Age: 65 Year
  Sex: Male

DRUGS (8)
  1. IMDUR [Concomitant]
     Indication: TREMOR
     Route: 048
  2. IMDUR [Concomitant]
     Indication: HYPERTENSION
  3. NORVASC [Concomitant]
     Indication: HYPERTENSION
     Route: 048
  4. PROPRANOLOL [Concomitant]
     Indication: HYPERTENSION
     Route: 048
  5. DIOVAN [Concomitant]
     Route: 048
  6. PRADAXA [Suspect]
     Indication: ATRIAL FIBRILLATION
     Dosage: 300 MG
     Route: 048
     Dates: start: 20101101
  7. MYSIOLNE [Concomitant]
     Indication: HYPERTENSION
  8. MYSIOLNE [Concomitant]
     Indication: TREMOR
     Route: 048

REACTIONS (1)
  - TREMOR [None]
